FAERS Safety Report 17711807 (Version 1)
Quarter: 2020Q2

REPORT INFORMATION
  Report Type: Spontaneous
  Country: US (occurrence: US)
  Receive Date: 20200426
  Receipt Date: 20200426
  Transmission Date: 20200714
  Serious: No
  Sender: FDA-Public Use
  Company Number: None

PATIENT
  Age: 52 Year
  Sex: Female
  Weight: 85.5 kg

DRUGS (8)
  1. ANTIHISTAMINE [Concomitant]
     Active Substance: ANTIHISTAMINES NOS
  2. BELSOMRA [Suspect]
     Active Substance: SUVOREXANT
     Indication: INSOMNIA
     Route: 048
     Dates: start: 20200424, end: 20200426
  3. AMITRYPTILINE [Concomitant]
     Active Substance: AMITRIPTYLINE
  4. BUSIPRONE [Concomitant]
  5. MULTIVITAMIN [Concomitant]
     Active Substance: VITAMINS
  6. ATENOLOL. [Concomitant]
     Active Substance: ATENOLOL
  7. BEANO [Concomitant]
     Active Substance: ASPERGILLUS NIGER .ALPHA.-GALACTOSIDASE
  8. VITAMIN D3 [Concomitant]
     Active Substance: CHOLECALCIFEROL

REACTIONS (5)
  - Somnolence [None]
  - Anxiety [None]
  - Sleep terror [None]
  - Headache [None]
  - Sleep paralysis [None]

NARRATIVE: CASE EVENT DATE: 20200425
